FAERS Safety Report 8884728 (Version 2)
Quarter: 2012Q4

REPORT INFORMATION
  Report Type: 
  Country: US (occurrence: US)
  Receive Date: 20121105
  Receipt Date: 20121206
  Transmission Date: 20130627
  Serious: Yes (Hospitalization)
  Sender: FDA-Public Use
  Company Number: US-AMGEN-USASP2012069244

PATIENT
  Age: 43 Year
  Sex: Male

DRUGS (1)
  1. ENBREL [Suspect]
     Indication: RHEUMATOID ARTHRITIS
     Dosage: 50 mg, weekly
     Route: 058
     Dates: start: 200104

REACTIONS (13)
  - Cyst [Recovered/Resolved]
  - Dural tear [Recovered/Resolved]
  - Lumbar spinal stenosis [Unknown]
  - Osteoarthritis [Unknown]
  - Staphylococcal infection [Recovered/Resolved]
  - Urinary tract infection [Recovered/Resolved]
  - Penile pain [Not Recovered/Not Resolved]
  - Anorectal discomfort [Not Recovered/Not Resolved]
  - Proctalgia [Not Recovered/Not Resolved]
  - Testicular pain [Recovered/Resolved]
  - Sinusitis [Recovered/Resolved]
  - Influenza [Recovered/Resolved]
  - Herpes zoster [Recovered/Resolved]
